FAERS Safety Report 23272582 (Version 1)
Quarter: 2023Q4

REPORT INFORMATION
  Report Type: Spontaneous
  Country: US (occurrence: US)
  Receive Date: 20231207
  Receipt Date: 20231207
  Transmission Date: 20240109
  Serious: Yes (Hospitalization, Other)
  Sender: FDA-Public Use
  Company Number: US-INSUD PHARMA-2311US08598

PATIENT

DRUGS (3)
  1. PROGESTERONE [Suspect]
     Active Substance: PROGESTERONE
     Indication: Malaise
     Dosage: UNK
     Route: 065
  2. HERBALS\WITHANIA SOMNIFERA ROOT [Suspect]
     Active Substance: HERBALS\WITHANIA SOMNIFERA ROOT
     Indication: Malaise
     Dosage: UNK
     Route: 065
  3. LEVOTHYROXINE [Concomitant]
     Active Substance: LEVOTHYROXINE

REACTIONS (11)
  - Hepatocellular injury [Recovered/Resolved]
  - Acute hepatic failure [Recovered/Resolved]
  - Hepatic encephalopathy [Recovered/Resolved]
  - Jaundice [Recovered/Resolved]
  - Early satiety [Recovered/Resolved]
  - Fatigue [Recovered/Resolved]
  - Malaise [Recovered/Resolved]
  - Nausea [Recovered/Resolved]
  - Vomiting [Recovered/Resolved]
  - Confusional state [Recovered/Resolved]
  - Mental status changes [Recovered/Resolved]
